FAERS Safety Report 23082839 (Version 2)
Quarter: 2024Q1

REPORT INFORMATION
  Report Type: Spontaneous
  Country: DK (occurrence: DK)
  Receive Date: 20231019
  Receipt Date: 20240219
  Transmission Date: 20240410
  Serious: Yes (Other)
  Sender: FDA-Public Use
  Company Number: None

PATIENT
  Age: 68 Year
  Sex: Female
  Weight: 77 kg

DRUGS (9)
  1. ATORVASTATIN [Suspect]
     Active Substance: ATORVASTATIN
     Indication: Hypercholesterolaemia
     Route: 048
     Dates: start: 20210404
  2. CLOPIDOGREL BESILATE [Concomitant]
     Active Substance: CLOPIDOGREL BESILATE
     Indication: Hypertension
     Dates: start: 20210404
  3. CLOPIDOGREL BESILATE [Concomitant]
     Active Substance: CLOPIDOGREL BESILATE
     Indication: Hypertension
     Dates: start: 20210404
  4. CLOPIDOGREL BESILATE [Concomitant]
     Active Substance: CLOPIDOGREL BESILATE
     Indication: Hypertension
  5. LERCANIDIPINE HYDROCHLORIDE [Concomitant]
     Active Substance: LERCANIDIPINE HYDROCHLORIDE
     Indication: Hypertension
     Dates: start: 20210404
  6. LERCANIDIPINE HYDROCHLORIDE [Concomitant]
     Active Substance: LERCANIDIPINE HYDROCHLORIDE
     Indication: Hypertension
  7. LOSARTAN [Concomitant]
     Active Substance: LOSARTAN
     Indication: Hypertension
     Dates: start: 20210404
  8. LOSARTAN [Concomitant]
     Active Substance: LOSARTAN
     Indication: Hypertension
     Dates: start: 20210404
  9. LOSARTAN [Concomitant]
     Active Substance: LOSARTAN
     Indication: Hypertension

REACTIONS (5)
  - Brain fog [Recovered/Resolved]
  - Dizziness [Recovered/Resolved]
  - Muscular weakness [Recovered/Resolved]
  - Fatigue [Recovered/Resolved]
  - Myalgia [Recovered/Resolved]

NARRATIVE: CASE EVENT DATE: 20220501
